FAERS Safety Report 9291099 (Version 1)
Quarter: 2013Q2

REPORT INFORMATION
  Report Type: Spontaneous
  Country: US (occurrence: US)
  Receive Date: 20130515
  Receipt Date: 20130515
  Transmission Date: 20140414
  Serious: Yes (Other)
  Sender: FDA-Public Use
  Company Number: US-ASTRAZENECA-2013SE31768

PATIENT
  Age: 69 Year
  Sex: Female

DRUGS (2)
  1. CRESTOR [Suspect]
     Indication: HYPERLIPIDAEMIA
     Route: 048
     Dates: end: 2013
  2. UNKNOWN [Interacting]
     Route: 065

REACTIONS (5)
  - Drug interaction [Unknown]
  - Paralysis [Recovered/Resolved]
  - Body mass index increased [Unknown]
  - Rhabdomyolysis [Unknown]
  - Diabetes mellitus [Unknown]
